FAERS Safety Report 4867962-X (Version None)
Quarter: 2005Q4

REPORT INFORMATION
  Report Type: 
  Country: None (occurrence: None)
  Receive Date: 20051227
  Receipt Date: 20051206
  Transmission Date: 20060501
  Serious: Yes (Congenital Anomaly)
  Sender: FDA-Public Use
  Company Number: GB-JNJFOC-20050906036

PATIENT

DRUGS (2)
  1. TOPAMAX [Suspect]
     Dosage: 250 MG, 2 IN 1 DAY, TRANSPLACENTAL
     Route: 064
  2. EPILIM (VALPROATE SODIUM) [Suspect]
     Dosage: 500 MG, IN 1 DAY

REACTIONS (6)
  - CLEFT PALATE [None]
  - CONGENITAL ANOMALY [None]
  - CONGENITAL CLAW TOE [None]
  - DRUG EXPOSURE DURING PREGNANCY [None]
  - DYSPNOEA [None]
  - FOETAL VALPROATE SYNDROME [None]
